FAERS Safety Report 9940669 (Version 1)
Quarter: 2014Q1

REPORT INFORMATION
  Report Type: Spontaneous
  Country: US (occurrence: US)
  Receive Date: 20140303
  Receipt Date: 20140303
  Transmission Date: 20141002
  Serious: Yes (Hospitalization)
  Sender: FDA-Public Use
  Company Number: US-INCYTE CORPORATION-2014IN000519

PATIENT
  Age: 62 Year
  Sex: Female
  Weight: 104.31 kg

DRUGS (8)
  1. JAKAFI [Suspect]
     Indication: MYELODYSPLASTIC SYNDROME
     Dosage: 10 MG, QD
     Route: 048
     Dates: start: 201402
  2. EXJADE [Suspect]
  3. VITAMIN D2 [Concomitant]
  4. OMEPRAZOLE [Concomitant]
  5. CITALOPRAM [Concomitant]
  6. ETODOLAC [Concomitant]
  7. LEVOTHYROXINE [Concomitant]
  8. POTASSIUM [Concomitant]

REACTIONS (4)
  - Dyspnoea [Unknown]
  - Cough [Unknown]
  - Musculoskeletal chest pain [Unknown]
  - Abdominal pain [Unknown]
